FAERS Safety Report 5249959-3 (Version None)
Quarter: 2007Q1

REPORT INFORMATION
  Report Type: 
  Country: None (occurrence: None)
  Receive Date: 20070228
  Receipt Date: 20060124
  Transmission Date: 20070707
  Serious: Yes (Other)
  Sender: FDA-Public Use
  Company Number: US-GLAXOSMITHKLINE-A0588802A

PATIENT
  Age: 29 Year
  Sex: Female

DRUGS (5)
  1. LAMICTAL [Suspect]
     Indication: BIPOLAR DISORDER
     Route: 048
     Dates: start: 20050804, end: 20051119
  2. EFFEXOR XR [Concomitant]
     Dosage: 150MG PER DAY
     Route: 048
  3. CLONAZEPAM [Concomitant]
     Dosage: .5MG THREE TIMES PER DAY
     Route: 048
  4. TRAZODONE HCL [Concomitant]
     Dosage: 50MG AT NIGHT
  5. VERAPAMIL [Concomitant]

REACTIONS (2)
  - PRURITUS [None]
  - RASH MACULO-PAPULAR [None]
